FAERS Safety Report 8676815 (Version 2)
Quarter: 2012Q4

REPORT INFORMATION
  Report Type: 
  Country: CA (occurrence: CA)
  Receive Date: 20120723
  Receipt Date: 20121203
  Transmission Date: 20130627
  Serious: Yes (Other)
  Sender: FDA-Public Use
  Company Number: CA-SHIRE-ALL1-2012-03483

PATIENT
  Age: 45 Year
  Sex: Female

DRUGS (2)
  1. VYVANSE [Suspect]
     Indication: ATTENTION DEFICIT/HYPERACTIVITY DISORDER
     Dosage: 30 mg, Unknown
     Route: 048
  2. OTHER PLANT ALKALOIDS AND NATURAL PRODUCTS [Concomitant]
     Indication: ATTENTION DEFICIT/HYPERACTIVITY DISORDER
     Dosage: UNK, Unknown
     Route: 065

REACTIONS (3)
  - Suicidal ideation [Unknown]
  - Major depression [Unknown]
  - Anxiety [Unknown]
